FAERS Safety Report 6037648-7 (Version None)
Quarter: 2009Q1

REPORT INFORMATION
  Report Type: 
  Country: None (occurrence: None)
  Receive Date: 20090114
  Receipt Date: 20090113
  Transmission Date: 20090719
  Serious: Yes (Other)
  Sender: FDA-Public Use
  Company Number: US-B.I. PHARMACEUTICALS,INC./RIDGEFIELD-2008-BP-17530PF

PATIENT
  Sex: Female
  Weight: 102 kg

DRUGS (13)
  1. SPIRIVA [Suspect]
     Indication: CHRONIC OBSTRUCTIVE PULMONARY DISEASE
     Dosage: 18MCG
     Dates: start: 20060101
  2. LIPITOR [Suspect]
     Indication: BLOOD CHOLESTEROL INCREASED
     Dates: start: 20030101
  3. LYRICA [Suspect]
     Indication: BACK PAIN
     Dates: start: 20070101
  4. LISINOPRIL/HYDROCHLORIDE [Concomitant]
  5. CYMBALTA [Concomitant]
  6. SKELAXIN [Concomitant]
  7. ACIPHEX [Concomitant]
  8. IBUPROFEN [Concomitant]
  9. COMBIVENT [Concomitant]
  10. ADVAIR DISKUS 100/50 [Concomitant]
  11. ALBUTEROL [Concomitant]
  12. HYDROCODONE BITARTRATE + ACETAMINOPHEN [Concomitant]
  13. NEURONTIN [Concomitant]

REACTIONS (4)
  - BLOOD CHOLESTEROL ABNORMAL [None]
  - DISLOCATION OF VERTEBRA [None]
  - FIBROMYALGIA [None]
  - TONGUE DISORDER [None]
